FAERS Safety Report 4586530-0 (Version None)
Quarter: 2005Q1

REPORT INFORMATION
  Report Type: 
  Country: None (occurrence: None)
  Receive Date: 20050218
  Receipt Date: 20040121
  Transmission Date: 20050727
  Serious: No
  Sender: FDA-Public Use
  Company Number: US-BRISTOL-MYERS SQUIBB COMPANY-12484317

PATIENT
  Age: 67 Year
  Sex: Female
  Weight: 50 kg

DRUGS (5)
  1. TAXOL [Suspect]
     Indication: BREAST CANCER
     Dosage: 30 MG/5ML
     Route: 042
  2. ATIVAN [Concomitant]
     Dosage: DURATION-^YEARS^
  3. OXYCONTIN [Concomitant]
  4. DECADRON [Concomitant]
     Indication: PREMEDICATION
     Route: 042
  5. BENADRYL [Concomitant]
     Indication: PREMEDICATION
     Route: 042

REACTIONS (8)
  - ALOPECIA [None]
  - DIARRHOEA [None]
  - FATIGUE [None]
  - HYPOAESTHESIA [None]
  - NAUSEA [None]
  - OEDEMA PERIPHERAL [None]
  - PAIN IN EXTREMITY [None]
  - PARAESTHESIA [None]
